FAERS Safety Report 4450189-3 (Version None)
Quarter: 2004Q3

REPORT INFORMATION
  Report Type: 
  Country: None (occurrence: None)
  Receive Date: 20040914
  Receipt Date: 20040831
  Transmission Date: 20050211
  Serious: Yes (Hospitalization)
  Sender: FDA-Public Use
  Company Number: 04P-056-0271302-00

PATIENT
  Age: 55 Year
  Sex: Female

DRUGS (5)
  1. DEPAKOTE [Suspect]
     Dosage: 500 MG, 2 IN 1 D, PER ORAL
     Route: 048
     Dates: start: 20031121, end: 20031217
  2. PARACETAMOL [Suspect]
     Dosage: 2000 MG, PER ORAL
     Route: 048
     Dates: start: 20031208, end: 20031217
  3. AMOXICILLIN [Suspect]
     Dosage: 1 DOSAGE FORMS, 3 IN 1 D, PER ORAL
     Route: 048
     Dates: start: 20031208, end: 20031217
  4. CYAMEMAZINE [Suspect]
     Dosage: 30 MG, 3 IN 1 DAY. (40 MG/ML), PER ORAL
     Route: 048
     Dates: start: 20031121, end: 20031219
  5. RISPERIDONE [Concomitant]

REACTIONS (1)
  - HEPATITIS [None]
